FAERS Safety Report 5716621-X (Version None)
Quarter: 2008Q2

REPORT INFORMATION
  Report Type: 
  Country: None (occurrence: None)
  Receive Date: 20080424
  Receipt Date: 20080417
  Transmission Date: 20081010
  Serious: Yes (Death)
  Sender: FDA-Public Use
  Company Number: US-KINGPHARMUSA00001-K200800424

PATIENT

DRUGS (5)
  1. AVINZA [Suspect]
     Indication: BACK PAIN
     Dosage: 60 MG, BID
     Route: 048
     Dates: start: 20070701, end: 20071101
  2. AVINZA [Suspect]
     Dosage: 90 MG, BID
     Route: 048
     Dates: start: 20071101
  3. PERCOCET [Concomitant]
     Dosage: 10 MG, TID
     Dates: start: 20070701
  4. ^CENTRAFIN^ [Concomitant]
     Indication: WEIGHT DECREASED
     Dosage: 75MG QD
  5. LASIX [Concomitant]

REACTIONS (2)
  - DEATH [None]
  - OVERDOSE [None]
